FAERS Safety Report 8834758 (Version 1)
Quarter: 2012Q4

REPORT INFORMATION
  Report Type: 
  Country: AT (occurrence: AT)
  Receive Date: 20121010
  Receipt Date: 20121010
  Transmission Date: 20130627
  Serious: Yes (Hospitalization)
  Sender: FDA-Public Use
  Company Number: AT-ASTRAZENECA-2012SE76226

PATIENT
  Age: 47 Year
  Sex: Male

DRUGS (12)
  1. SELOKEN [Suspect]
     Route: 048
     Dates: start: 2007, end: 20120206
  2. SEROQUEL [Suspect]
     Indication: PANIC DISORDER
     Route: 048
     Dates: start: 2007, end: 201111
  3. SEROQUEL [Suspect]
     Indication: PANIC DISORDER
     Route: 048
     Dates: start: 20120203, end: 20120207
  4. SEROQUEL [Suspect]
     Indication: PANIC DISORDER
     Route: 048
     Dates: start: 20120208, end: 20120213
  5. SEROQUEL [Suspect]
     Indication: PANIC DISORDER
     Route: 048
     Dates: start: 20120214
  6. SERTRALINE [Suspect]
     Indication: PANIC DISORDER
     Route: 048
     Dates: start: 2007, end: 201111
  7. SERTRALINE [Suspect]
     Indication: PANIC DISORDER
     Route: 048
     Dates: start: 20120204, end: 20120214
  8. MILNACIPRAN HYDROCHLORIDE [Suspect]
     Dosage: 150 DAILY
     Dates: start: 201111, end: 20120203
  9. ABILIFY [Concomitant]
     Dosage: 15 DAILY
     Dates: start: 201111, end: 20120203
  10. ACEMIN [Concomitant]
     Dates: start: 20120207
  11. ATARAX [Concomitant]
     Dates: start: 20120214
  12. STABLON [Concomitant]
     Dates: start: 20120215

REACTIONS (4)
  - Erectile dysfunction [Recovering/Resolving]
  - Erectile dysfunction [None]
  - Condition aggravated [None]
  - Panic disorder [None]
